FAERS Safety Report 16337123 (Version 1)
Quarter: 2019Q2

REPORT INFORMATION
  Report Type: Spontaneous
  Country: US (occurrence: US)
  Receive Date: 20190521
  Receipt Date: 20190521
  Transmission Date: 20190711
  Serious: No
  Sender: FDA-Public Use
  Company Number: US-PFIZER INC-2019215721

PATIENT

DRUGS (17)
  1. HYPAQUE M 60% [Suspect]
     Active Substance: DIATRIZOATE MEGLUMINE
     Dosage: UNK
  2. VIOXX [Suspect]
     Active Substance: ROFECOXIB
     Dosage: UNK
  3. CELEBREX [Suspect]
     Active Substance: CELECOXIB
     Dosage: UNK
  4. FLAGYL [Suspect]
     Active Substance: METRONIDAZOLE\METRONIDAZOLE HYDROCHLORIDE
     Dosage: UNK
  5. NABUMETONE. [Suspect]
     Active Substance: NABUMETONE
     Dosage: UNK
  6. PIROXICAM. [Suspect]
     Active Substance: PIROXICAM
     Dosage: UNK
  7. DARVON [BETAHISTINE MESILATE] [Suspect]
     Active Substance: BETAHISTINE MESILATE
     Dosage: UNK
  8. ARTHROTEC [Suspect]
     Active Substance: DICLOFENAC SODIUM\MISOPROSTOL
     Dosage: UNK
  9. ETODOLAC. [Suspect]
     Active Substance: ETODOLAC
     Dosage: UNK
  10. NORFLEX [Suspect]
     Active Substance: ORPHENADRINE CITRATE
     Dosage: UNK
  11. ULTRAM [Suspect]
     Active Substance: TRAMADOL HYDROCHLORIDE
     Dosage: UNK
  12. VICODIN [Suspect]
     Active Substance: ACETAMINOPHEN\HYDROCODONE BITARTRATE
     Dosage: UNK
  13. DEMEROL [Suspect]
     Active Substance: MEPERIDINE HYDROCHLORIDE
     Dosage: UNK
  14. DURAGESIC [Suspect]
     Active Substance: FENTANYL
     Dosage: UNK
  15. PROTOPIC [Suspect]
     Active Substance: TACROLIMUS
     Dosage: UNK
  16. CEPHALEXIN HCL [Suspect]
     Active Substance: CEPHALEXIN HYDROCHLORIDE
     Dosage: UNK
  17. SULFUR. [Suspect]
     Active Substance: SULFUR
     Dosage: UNK

REACTIONS (1)
  - Drug hypersensitivity [Unknown]
